FAERS Safety Report 6860947-3 (Version None)
Quarter: 2010Q3

REPORT INFORMATION
  Report Type: 
  Country: None (occurrence: None)
  Receive Date: 20100715
  Receipt Date: 20100708
  Transmission Date: 20110219
  Serious: Yes (Life-Threatening)
  Sender: FDA-Public Use
  Company Number: DSU-2010-03246

PATIENT
  Age: 80 Year
  Sex: Female
  Weight: 43 kg

DRUGS (1)
  1. CHOLESTAGEL (COLESEVELAM HYDROCHLORIDE) (625 MILLIGRAM, TABLET)(COLESE [Suspect]
     Indication: DIARRHOEA
     Dosage: 1875 MG (625 MG, TID), PER ORAL
     Route: 048
     Dates: start: 20100531, end: 20100602

REACTIONS (5)
  - ABDOMINAL PAIN [None]
  - DECREASED APPETITE [None]
  - HEPATIC FUNCTION ABNORMAL [None]
  - JAUNDICE [None]
  - WEIGHT DECREASED [None]
